FAERS Safety Report 24797370 (Version 2)
Quarter: 2025Q1

REPORT INFORMATION
  Report Type: Other
  Country: US (occurrence: US)
  Receive Date: 20250102
  Receipt Date: 20250205
  Transmission Date: 20250408
  Serious: Yes (Death, Hospitalization, Other)
  Sender: MADRIGAL PHARMACEUTICALS
  Company Number: US-MADRIGAL PHARMACEUTICALS, INC-2024REZ4254

PATIENT

DRUGS (11)
  1. REZDIFFRA [Suspect]
     Active Substance: RESMETIROM
     Indication: Metabolic dysfunction-associated steatohepatitis
     Dosage: 80 MILLIGRAM, QD
     Route: 048
     Dates: start: 20240902, end: 20241212
  2. ATIVAN [Concomitant]
     Active Substance: LORAZEPAM
  3. ATORVASTATIN [Concomitant]
     Active Substance: ATORVASTATIN
  4. LEXAPRO [Concomitant]
     Active Substance: ESCITALOPRAM OXALATE
  5. LOSARTAN [Concomitant]
     Active Substance: LOSARTAN
  6. MACRODANTIN [Concomitant]
     Active Substance: NITROFURANTOIN
  7. METOPROLOL SUCCINATE [Concomitant]
     Active Substance: METOPROLOL SUCCINATE
  8. NAMZARIC [Concomitant]
     Active Substance: DONEPEZIL HYDROCHLORIDE\MEMANTINE HYDROCHLORIDE
  9. PROTONIX [Concomitant]
     Active Substance: PANTOPRAZOLE SODIUM
  10. MEMANTINE [Concomitant]
     Active Substance: MEMANTINE
  11. NITROFURANTOIN MACROCRYSTALS [Concomitant]
     Active Substance: NITROFURANTOIN

REACTIONS (4)
  - Pneumonia [Fatal]
  - Hepatic encephalopathy [Not Recovered/Not Resolved]
  - Hepatic cirrhosis [Not Recovered/Not Resolved]
  - Urinary tract infection [Not Recovered/Not Resolved]

NARRATIVE: CASE EVENT DATE: 20241212
